FAERS Safety Report 5465877-X (Version None)
Quarter: 2007Q3

REPORT INFORMATION
  Report Type: 
  Country: None (occurrence: None)
  Receive Date: 20070924
  Receipt Date: 20070914
  Transmission Date: 20080115
  Serious: Yes (Other)
  Sender: FDA-Public Use
  Company Number: GB-ASTRAZENECA-2007GB01903

PATIENT
  Age: 53 Year
  Sex: Male

DRUGS (9)
  1. LIDOCAINE [Suspect]
     Indication: ANAESTHESIA
     Route: 065
     Dates: start: 20070402, end: 20070402
  2. ADRENALINE [Concomitant]
     Indication: EYE IRRIGATION
     Dates: start: 20070402
  3. BETAMETHASONE [Concomitant]
     Indication: POSTOPERATIVE CARE
     Route: 031
     Dates: start: 20070402
  4. CYCLOPENTOLATE HCL [Concomitant]
     Indication: PREOPERATIVE CARE
     Route: 031
     Dates: start: 20070402
  5. FLURBIPROFEN SODIUM [Concomitant]
     Indication: PREOPERATIVE CARE
     Route: 031
     Dates: start: 20070402
  6. NEOMYCIN [Concomitant]
     Indication: POSTOPERATIVE CARE
     Route: 031
     Dates: start: 20070402
  7. PHENYLEPHRINE [Concomitant]
     Indication: PREOPERATIVE CARE
     Route: 031
     Dates: start: 20070402
  8. POVIDONE IODINE [Concomitant]
     Indication: PREOPERATIVE CARE
     Dates: start: 20070402
  9. VANCOMYCIN [Concomitant]
     Indication: EYE IRRIGATION
     Dates: start: 20070402

REACTIONS (1)
  - TOXIC ANTERIOR SEGMENT SYNDROME [None]
